FAERS Safety Report 16889727 (Version 2)
Quarter: 2019Q4

REPORT INFORMATION
  Report Type: Report from Study
  Country: FR (occurrence: FR)
  Receive Date: 20191007
  Receipt Date: 20191015
  Transmission Date: 20200122
  Serious: Yes (Other)
  Sender: FDA-Public Use
  Company Number: FR-ROCHE-2421398

PATIENT
  Age: 75 Year
  Sex: Female

DRUGS (6)
  1. BICARBONATE [Concomitant]
     Active Substance: SODIUM BICARBONATE
     Route: 065
  2. DOCETAXEL. [Suspect]
     Active Substance: DOCETAXEL
     Indication: ANAL SQUAMOUS CELL CARCINOMA
     Dosage: MOST RECENT DOSE: 68 MG ON 16/JUL/2019 PRIOR TO EVENT ONSET
     Route: 065
     Dates: start: 20190409
  3. MOVICOL [Concomitant]
     Active Substance: POLYETHYLENE GLYCOL 3350\POTASSIUM CHLORIDE\SODIUM BICARBONATE\SODIUM CHLORIDE
  4. ATEZOLIZUMAB. [Suspect]
     Active Substance: ATEZOLIZUMAB
     Indication: ANAL SQUAMOUS CELL CARCINOMA
     Dosage: MOST RECENT DOSE OF 800 ON 16/JUL/2019 PRIOR TO EVENT ONSET
     Route: 065
     Dates: start: 20190409, end: 20190916
  5. CISPLATINE [Suspect]
     Active Substance: CISPLATIN
     Indication: ANAL SQUAMOUS CELL CARCINOMA
     Dosage: MOST RECENT DOSE OF 67 MG ON 16/JUL/2019 PRIOR TO EVENT ONSET
     Route: 065
     Dates: start: 20190409
  6. 5-FLUOROURACIL [FLUOROURACIL] [Suspect]
     Active Substance: FLUOROURACIL
     Indication: ANAL SQUAMOUS CELL CARCINOMA
     Dosage: MOST RECENT DOSE OF 4000 MG ON 16/JUL/2019 PRIOR TO EVENT ONSET
     Route: 065
     Dates: start: 20190409

REACTIONS (1)
  - Colitis [Recovered/Resolved]

NARRATIVE: CASE EVENT DATE: 20190716
